FAERS Safety Report 12482341 (Version 1)
Quarter: 2016Q2

REPORT INFORMATION
  Report Type: Spontaneous
  Country: AR (occurrence: AR)
  Receive Date: 20160620
  Receipt Date: 20160620
  Transmission Date: 20160815
  Serious: Yes (Other)
  Sender: FDA-Public Use
  Company Number: AR-ELI_LILLY_AND_COMPANY-AR201606005860

PATIENT
  Age: 29 Year
  Sex: Female

DRUGS (4)
  1. IRINOTECAN [Suspect]
     Active Substance: IRINOTECAN
     Indication: COLON CANCER
     Dosage: 271 MG, UNKNOWN
     Route: 065
     Dates: start: 20160601
  2. ERBITUX [Suspect]
     Active Substance: CETUXIMAB
     Indication: COLON CANCER
     Dosage: 755 MG, UNKNOWN
     Route: 065
     Dates: start: 20160601
  3. LEUCOVORIN                         /00566701/ [Suspect]
     Active Substance: LEUCOVORIN
     Indication: COLON CANCER
     Dosage: 400 MG, UNKNOWN
     Route: 065
     Dates: start: 20160601
  4. 5-FU                               /00098801/ [Suspect]
     Active Substance: FLUOROURACIL
     Indication: COLON CANCER
     Dosage: 600 MG, UNKNOWN
     Route: 040
     Dates: start: 20160601

REACTIONS (2)
  - Sinus tachycardia [Unknown]
  - Hypertensive crisis [Unknown]

NARRATIVE: CASE EVENT DATE: 20160601
